FAERS Safety Report 7636899-5 (Version None)
Quarter: 2011Q3

REPORT INFORMATION
  Report Type: 
  Country: None (occurrence: None)
  Receive Date: 20110722
  Receipt Date: 20110722
  Transmission Date: 20111222
  Serious: No
  Sender: FDA-Public Use
  Company Number: None

PATIENT
  Age: 80 Year
  Sex: Male
  Weight: 70.3075 kg

DRUGS (3)
  1. LAMISIL AT [Suspect]
     Indication: BALANITIS
     Dosage: 1 APPLICATION 7/14/2011 CEASED
     Dates: start: 20110714
  2. AMOXICILLIN [Suspect]
     Indication: BALANITIS
     Dosage: 2 PILLS 1 FRI, 1 SAT CEASED
     Dates: start: 20110711
  3. AMOXICILLIN [Suspect]
     Indication: BALANITIS
     Dosage: 2 PILLS 1 FRI, 1 SAT CEASED
     Dates: start: 20110710

REACTIONS (6)
  - CHILLS [None]
  - BURNING SENSATION [None]
  - RHINORRHOEA [None]
  - DECREASED APPETITE [None]
  - NAUSEA [None]
  - SLEEP DISORDER [None]
